FAERS Safety Report 12569787 (Version 1)
Quarter: 2016Q3

REPORT INFORMATION
  Report Type: Spontaneous
  Country: US (occurrence: None)
  Receive Date: 20160718
  Receipt Date: 20160718
  Transmission Date: 20161109
  Serious: Yes (Other)
  Sender: FDA-Public Use
  Company Number: None

PATIENT
  Age: 57 Year
  Sex: Female
  Weight: 90.27 kg

DRUGS (7)
  1. HAIR VITAMINS WITH BIOTIN [Concomitant]
  2. PERCOCET [Suspect]
     Active Substance: ACETAMINOPHEN\OXYCODONE HYDROCHLORIDE
     Indication: BACK PAIN
     Dosage: 20 TABLET(S) FOUR TIMES A DAY TAKEN BY MOUTH
     Route: 048
     Dates: start: 20160707, end: 20160712
  3. LOSARTEN [Concomitant]
     Active Substance: LOSARTAN
  4. ASA [Concomitant]
     Active Substance: ASPIRIN
  5. FLEXERIL [Concomitant]
     Active Substance: CYCLOBENZAPRINE HYDROCHLORIDE
  6. LYRICA [Concomitant]
     Active Substance: PREGABALIN
  7. OXYCONTIN [Concomitant]
     Active Substance: OXYCODONE HYDROCHLORIDE

REACTIONS (5)
  - Musculoskeletal pain [None]
  - Chest pain [None]
  - Product substitution issue [None]
  - Pain in extremity [None]
  - Chest discomfort [None]

NARRATIVE: CASE EVENT DATE: 20160709
